FAERS Safety Report 19015411 (Version 2)
Quarter: 2021Q2

REPORT INFORMATION
  Report Type: Spontaneous
  Country: US (occurrence: US)
  Receive Date: 20210317
  Receipt Date: 20210506
  Transmission Date: 20210717
  Serious: No
  Sender: FDA-Public Use
  Company Number: US-JNJFOC-20210323095

PATIENT
  Age: 37 Year
  Sex: Male
  Weight: 115.32 kg

DRUGS (4)
  1. SEROQUEL [Concomitant]
     Active Substance: QUETIAPINE FUMARATE
     Route: 065
  2. SYMTUZA [Suspect]
     Active Substance: COBICISTAT\DARUNAVIR\EMTRICITABINE\TENOFOVIR ALAFENAMIDE
     Indication: HIV INFECTION
     Dosage: 90 DOSES
     Route: 048
     Dates: start: 20201203
  3. DAPSONE. [Concomitant]
     Active Substance: DAPSONE
     Indication: PNEUMOCYSTIS JIROVECII PNEUMONIA
     Route: 065
     Dates: start: 2019
  4. LYRICA [Concomitant]
     Active Substance: PREGABALIN
     Indication: NEUROPATHY PERIPHERAL
     Route: 065
     Dates: end: 202012

REACTIONS (3)
  - Diarrhoea [Recovering/Resolving]
  - Weight decreased [Unknown]
  - Pruritus [Recovering/Resolving]

NARRATIVE: CASE EVENT DATE: 202012
